FAERS Safety Report 12680405 (Version 1)
Quarter: 2016Q3

REPORT INFORMATION
  Report Type: Spontaneous
  Country: US (occurrence: US)
  Receive Date: 20160824
  Receipt Date: 20160824
  Transmission Date: 20161109
  Serious: Yes (Hospitalization, Other)
  Sender: FDA-Public Use
  Company Number: US-GLAXOSMITHKLINE-US2016121429

PATIENT
  Age: 62 Year
  Sex: Female

DRUGS (7)
  1. EFFIENT [Concomitant]
     Active Substance: PRASUGREL HYDROCHLORIDE
  2. LOSARTAN. [Concomitant]
     Active Substance: LOSARTAN
  3. VENTOLIN HFA [Suspect]
     Active Substance: ALBUTEROL SULFATE
     Indication: DYSPNOEA
     Dosage: 2 PUFF(S), QID
     Dates: start: 2007
  4. ASPIRIN. [Concomitant]
     Active Substance: ASPIRIN
  5. ATORVASTATIN [Concomitant]
     Active Substance: ATORVASTATIN
  6. HYDROCODONE [Concomitant]
     Active Substance: HYDROCODONE
  7. CARVEDILOL. [Concomitant]
     Active Substance: CARVEDILOL

REACTIONS (12)
  - Pain [Not Recovered/Not Resolved]
  - Arthropathy [Unknown]
  - Cataract [Not Recovered/Not Resolved]
  - Hypertension [Unknown]
  - Device use error [Unknown]
  - Blood cholesterol increased [Recovering/Resolving]
  - Calcinosis [Recovering/Resolving]
  - Upper limb fracture [Unknown]
  - Fall [Not Recovered/Not Resolved]
  - Myocardial infarction [Unknown]
  - Knee operation [Not Recovered/Not Resolved]
  - Coronary arterial stent insertion [Unknown]

NARRATIVE: CASE EVENT DATE: 2008
